FAERS Safety Report 8499866-8 (Version None)
Quarter: 2012Q3

REPORT INFORMATION
  Report Type: 
  Country: None (occurrence: None)
  Receive Date: 20120710
  Receipt Date: 20120703
  Transmission Date: 20120928
  Serious: Yes (Other)
  Sender: FDA-Public Use
  Company Number: AU-PFIZER INC-2012161545

PATIENT
  Age: 14 Year
  Sex: Male

DRUGS (1)
  1. FLUCONAZOLE [Suspect]

REACTIONS (1)
  - ASPERGILLOSIS [None]
